FAERS Safety Report 24068822 (Version 1)
Quarter: 2024Q3

REPORT INFORMATION
  Report Type: Spontaneous
  Country: IN (occurrence: IN)
  Receive Date: 20240710
  Receipt Date: 20240710
  Transmission Date: 20241017
  Serious: No
  Sender: ROCHE
  Company Number: IN-ROCHE-3537720

PATIENT
  Age: 52 Year
  Sex: Male

DRUGS (2)
  1. VABYSMO [Suspect]
     Active Substance: FARICIMAB\FARICIMAB-SVOA
     Indication: Diabetic retinal oedema
     Dosage: SECOND INFUSION START DATE FOR RIGHT EYE WILL BE: 30-MAR-2024 ;ONGOING: YES
     Route: 050
     Dates: start: 20240228
  2. VABYSMO [Suspect]
     Active Substance: FARICIMAB\FARICIMAB-SVOA
     Dosage: SECOND INFUSION START DATE FOR LEFT EYE WILL BE : 08-APR-2024 ;ONGOING: YES
     Route: 050
     Dates: start: 20240307

REACTIONS (2)
  - Off label use [Unknown]
  - No adverse event [Unknown]

NARRATIVE: CASE EVENT DATE: 20240228
